FAERS Safety Report 14471523 (Version 2)
Quarter: 2019Q4

REPORT INFORMATION
  Report Type: Report from Study
  Country: CO (occurrence: CO)
  Receive Date: 20180131
  Receipt Date: 20191211
  Transmission Date: 20200122
  Serious: Yes (Other)
  Sender: FDA-Public Use
  Company Number: CO-ACTELION-A-NJ2018-166875

PATIENT
  Age: 39 Year
  Sex: Female

DRUGS (1)
  1. VENTAVIS [Suspect]
     Active Substance: ILOPROST
     Indication: PULMONARY HYPERTENSION
     Dosage: 4 DF, QD
     Route: 055
     Dates: start: 20150507

REACTIONS (6)
  - Headache [Recovered/Resolved]
  - Coronary artery disease [Unknown]
  - Malaise [Recovered/Resolved]
  - Lung disorder [Unknown]
  - Incorrect dose administered [Unknown]
  - Pyrexia [Recovered/Resolved]

NARRATIVE: CASE EVENT DATE: 20150507
